FAERS Safety Report 25097682 (Version 1)
Quarter: 2025Q1

REPORT INFORMATION
  Report Type: Spontaneous
  Country: AE (occurrence: AE)
  Receive Date: 20250320
  Receipt Date: 20250320
  Transmission Date: 20250409
  Serious: Yes (Hospitalization, Other)
  Sender: RANBAXY
  Company Number: AE-SUN PHARMACEUTICAL INDUSTRIES LTD-2025RR-499861

PATIENT
  Age: 40 Year
  Sex: Male

DRUGS (1)
  1. METFORMIN [Suspect]
     Active Substance: METFORMIN HYDROCHLORIDE
     Indication: Type 2 diabetes mellitus
     Dosage: 1000 MILLIGRAM, BID
     Route: 065

REACTIONS (6)
  - Haemolytic anaemia [Recovered/Resolved]
  - Haemolysis [Recovering/Resolving]
  - Chest discomfort [Unknown]
  - Palpitations [Unknown]
  - Dizziness [Unknown]
  - Jaundice [Unknown]
